FAERS Safety Report 21346493 (Version 4)
Quarter: 2024Q3

REPORT INFORMATION
  Report Type: Spontaneous
  Country: US (occurrence: US)
  Receive Date: 20220917
  Receipt Date: 20240820
  Transmission Date: 20241017
  Serious: No
  Sender: LUPIN
  Company Number: US-LUPIN PHARMACEUTICALS INC.-2022-10983

PATIENT

DRUGS (1)
  1. ALBUTEROL SULFATE [Suspect]
     Active Substance: ALBUTEROL SULFATE
     Indication: Asthma
     Dosage: UNK, PRN (2-4 PUFFS EVERY 4 HOURS AS NEEDED)

REACTIONS (3)
  - Device defective [Unknown]
  - Wrong technique in device usage process [Unknown]
  - No adverse event [Unknown]
